FAERS Safety Report 9195738 (Version 1)
Quarter: 2013Q1

REPORT INFORMATION
  Report Type: Spontaneous
  Country: US (occurrence: None)
  Receive Date: 20120705
  Receipt Date: 20120705
  Transmission Date: 20140127
  Serious: Yes (Hospitalization)
  Sender: FDA-Public Use
  Company Number: US-CYPR-2011-000117

PATIENT
  Age: 66 Year
  Sex: Male
  Weight: 148.78 kg

DRUGS (8)
  1. PLAVIX [Suspect]
     Indication: ANTIPLATELET THERAPY
     Route: 048
     Dates: start: 20110609
  2. ASPIRIN [Suspect]
     Indication: CORONARY ARTERY DISEASE
     Route: 048
     Dates: start: 20080812
  3. ZAROXOLYN [Concomitant]
  4. METOPROLOL [Concomitant]
  5. NIASPAN [Concomitant]
  6. SIMVASTATIN [Concomitant]
  7. BENICAR [Concomitant]
  8. LASIX [Concomitant]

REACTIONS (1)
  - Back pain [None]
